FAERS Safety Report 9020590 (Version 1)
Quarter: 2013Q1

REPORT INFORMATION
  Report Type: Spontaneous
  Country: US (occurrence: US)
  Receive Date: 20130119
  Receipt Date: 20130119
  Transmission Date: 20140127
  Serious: No
  Sender: FDA-Public Use
  Company Number: US-ALLERGAN-1207088US

PATIENT
  Age: 72 Year
  Sex: Female

DRUGS (6)
  1. BOTOX? [Suspect]
     Indication: TORTICOLLIS
     Dosage: 300 UNITS, SINGLE
     Route: 030
     Dates: start: 20120504, end: 20120504
  2. BOTOX? [Suspect]
     Indication: BLEPHAROSPASM
     Dosage: UNK
     Route: 030
  3. THYROID MEDICATION [Concomitant]
     Indication: PRODUCT USED FOR UNKNOWN INDICATION
  4. GLYBURIDE [Concomitant]
     Indication: DIABETES MELLITUS
  5. SIMVASTIN [Concomitant]
     Indication: BLOOD CHOLESTEROL INCREASED
     Dosage: UNK
     Dates: end: 20120516
  6. AMBIEN [Concomitant]
     Indication: SLEEP DISORDER
     Dosage: UNK
     Dates: end: 20120516

REACTIONS (4)
  - Vision blurred [Unknown]
  - Diplopia [Unknown]
  - Dizziness [Unknown]
  - Eyelid ptosis [Unknown]
